FAERS Safety Report 17697006 (Version 6)
Quarter: 2020Q4

REPORT INFORMATION
  Report Type: Report from Study
  Country: FR (occurrence: FR)
  Receive Date: 20200423
  Receipt Date: 20201022
  Transmission Date: 20210113
  Serious: Yes (Death, Other)
  Sender: FDA-Public Use
  Company Number: FR-ADVANZ PHARMA-202004003543

PATIENT

DRUGS (11)
  1. HYDROXYCHLOROQUINE SULFATE (AUTHORIZED GENERIC),PLAQUENIL [Suspect]
     Active Substance: HYDROXYCHLOROQUINE SULFATE
     Indication: COVID-19
     Dosage: 600 MG, QD, (FILM COATED TABLET),GASTROENTERAL ROUTE
     Dates: start: 20200324, end: 20200324
  2. HEPARIN SODIUM. [Concomitant]
     Active Substance: HEPARIN SODIUM
     Dosage: UNK
     Dates: start: 20200403
  3. INSULIN [Concomitant]
     Active Substance: INSULIN NOS
     Indication: PROPHYLAXIS
     Dosage: UNK
     Dates: start: 20200325
  4. RIFAMYCINE [Concomitant]
     Active Substance: RIFAMYCIN SODIUM
     Dosage: UNK
     Dates: start: 20200420
  5. CARBOMERE [Concomitant]
     Dosage: UNK
     Dates: start: 20200416
  6. HYDROXYCHLOROQUINE SULFATE (AUTHORIZED GENERIC),PLAQUENIL [Suspect]
     Active Substance: HYDROXYCHLOROQUINE SULFATE
     Dosage: 1000 MG, QD, (FILM COATED TABLET), GASTROENTERAL ROUTE
     Dates: start: 20200325, end: 20200325
  7. CEFTRIAXONE. [Concomitant]
     Active Substance: CEFTRIAXONE
     Indication: CORONAVIRUS INFECTION
     Dosage: UNK
     Dates: start: 20200323, end: 20200330
  8. HYDROXYCHLOROQUINE SULFATE (AUTHORIZED GENERIC),PLAQUENIL [Suspect]
     Active Substance: HYDROXYCHLOROQUINE SULFATE
     Dosage: 400 MG, QD, (FILM COATED TABLET), GASTROENTERAL ROUTE
     Dates: start: 20200326, end: 20200327
  9. ENOXAPARIN [Concomitant]
     Active Substance: ENOXAPARIN
     Indication: ANTICOAGULANT THERAPY
     Dosage: UNK
     Dates: start: 20200324, end: 20200421
  10. VITAMIN A [Concomitant]
     Active Substance: VITAMIN A
     Dosage: UNK
     Dates: start: 20200416
  11. ENTERAL NUTRITIONAL (TPF-T) [Concomitant]
     Indication: NUTRITIONAL SUPPLEMENTATION
     Dosage: UNK
     Dates: start: 20200416

REACTIONS (7)
  - Pneumonia bacterial [Fatal]
  - Acute kidney injury [Not Recovered/Not Resolved]
  - Acute respiratory distress syndrome [Fatal]
  - Condition aggravated [Fatal]
  - Acute respiratory distress syndrome [Recovered/Resolved]
  - Off label use [Unknown]
  - Multiple organ dysfunction syndrome [Fatal]

NARRATIVE: CASE EVENT DATE: 20200324
